FAERS Safety Report 11644829 (Version 1)
Quarter: 2015Q4

REPORT INFORMATION
  Report Type: Spontaneous
  Country: IN (occurrence: IN)
  Receive Date: 20151020
  Receipt Date: 20151020
  Transmission Date: 20160304
  Serious: Yes (Death)
  Sender: FDA-Public Use
  Company Number: IN-B.I. PHARMACEUTICALS,INC./RIDGEFIELD-2015-BI-57578IG

PATIENT
  Age: 80 Year
  Sex: Male
  Weight: 63.6 kg

DRUGS (1)
  1. PRADAXA [Suspect]
     Active Substance: DABIGATRAN ETEXILATE MESYLATE
     Indication: ATRIAL FIBRILLATION
     Route: 048
     Dates: end: 20150925

REACTIONS (3)
  - Urosepsis [Fatal]
  - Sepsis [Fatal]
  - Urethral stenosis [Unknown]

NARRATIVE: CASE EVENT DATE: 20150915
